APPROVED DRUG PRODUCT: PBZ
Active Ingredient: TRIPELENNAMINE CITRATE
Strength: EQ 25MG HYDROCHLORIDE/5ML
Dosage Form/Route: ELIXIR;ORAL
Application: N005914 | Product #004
Applicant: NOVARTIS PHARMACEUTICALS CORP
Approved: Approved Prior to Jan 1, 1982 | RLD: No | RS: No | Type: DISCN